FAERS Safety Report 17816351 (Version 3)
Quarter: 2020Q4

REPORT INFORMATION
  Report Type: Report from Study
  Country: US (occurrence: US)
  Receive Date: 20200522
  Receipt Date: 20201118
  Transmission Date: 20210113
  Serious: Yes (Other)
  Sender: FDA-Public Use
  Company Number: NVSC2020US139307

PATIENT
  Age: 12 Year
  Sex: Female

DRUGS (1)
  1. AFINITOR [Suspect]
     Active Substance: EVEROLIMUS
     Indication: ASTROCYTOMA, LOW GRADE
     Dosage: 5 MG, QD
     Route: 048

REACTIONS (5)
  - Intellectual disability [Unknown]
  - Gingival pain [Unknown]
  - Behaviour disorder [Unknown]
  - Gingival bleeding [Unknown]
  - Stomatitis [Unknown]

NARRATIVE: CASE EVENT DATE: 20191221
